FAERS Safety Report 16851265 (Version 1)
Quarter: 2019Q3

REPORT INFORMATION
  Report Type: Spontaneous
  Country: HR (occurrence: HR)
  Receive Date: 20190925
  Receipt Date: 20190925
  Transmission Date: 20191005
  Serious: Yes (Other)
  Sender: FDA-Public Use
  Company Number: HR-PFIZER INC-2019405609

PATIENT
  Age: 77 Year
  Sex: Female

DRUGS (7)
  1. CARBAMAZEPIN [Suspect]
     Active Substance: CARBAMAZEPINE
     Dosage: 100 MG, UNK
  2. RIVAROXABAN [Suspect]
     Active Substance: RIVAROXABAN
     Dosage: 20 MG, UNK
  3. AMIODARONE [Suspect]
     Active Substance: AMIODARONE
     Dosage: 200 MG, UNK
  4. ATORVASTATIN CALCIUM. [Suspect]
     Active Substance: ATORVASTATIN CALCIUM
     Dosage: 40 MG, UNK
  5. TAMOXIFEN [Suspect]
     Active Substance: TAMOXIFEN
     Dosage: 20 MG, UNK
  6. BISOPROLOL/PERINDOPRIL [Suspect]
     Active Substance: BISOPROLOL\PERINDOPRIL
     Dosage: 5/5 MG, UNK
  7. INSULIN [Suspect]
     Active Substance: INSULIN NOS
     Dosage: AS RECOMMENDED

REACTIONS (1)
  - Myocardial ischaemia [Unknown]
